FAERS Safety Report 16287087 (Version 1)
Quarter: 2019Q2

REPORT INFORMATION
  Report Type: Spontaneous
  Country: US (occurrence: US)
  Receive Date: 20190508
  Receipt Date: 20190508
  Transmission Date: 20190711
  Serious: Yes (Other)
  Sender: FDA-Public Use
  Company Number: US-PFIZER INC-2019192442

PATIENT
  Age: 73 Year
  Sex: Female

DRUGS (1)
  1. IBRANCE [Suspect]
     Active Substance: PALBOCICLIB
     Indication: BREAST CANCER METASTATIC
     Dosage: 125 MG, 1X/DAY (ONCE A DAY FOR 21 DAYS )

REACTIONS (6)
  - Alopecia [Not Recovered/Not Resolved]
  - Amnesia [Unknown]
  - Arthralgia [Unknown]
  - Diabetes mellitus [Unknown]
  - Neoplasm progression [Unknown]
  - Bone pain [Not Recovered/Not Resolved]
